FAERS Safety Report 13191444 (Version 1)
Quarter: 2017Q1

REPORT INFORMATION
  Report Type: Spontaneous
  Country: GB (occurrence: GB)
  Receive Date: 20170207
  Receipt Date: 20170207
  Transmission Date: 20170428
  Serious: Yes (Hospitalization)
  Sender: FDA-Public Use
  Company Number: GB-ACCORD-047942

PATIENT
  Age: 61 Year
  Sex: Male

DRUGS (19)
  1. FUROSEMIDE. [Concomitant]
     Active Substance: FUROSEMIDE
     Dosage: IN THE MORNING
  2. RANOLAZINE/RANOLAZINE HYDROCHLORIDE [Concomitant]
  3. TAMSULOSIN/TAMSULOSIN HYDROCHLORIDE [Suspect]
     Active Substance: TAMSULOSIN HYDROCHLORIDE
     Indication: PRODUCT USED FOR UNKNOWN INDICATION
  4. CHEMYDUR XL [Concomitant]
  5. DOCUSATE/DOCUSATE CALCIUM/DOCUSATE POTASSIUM/DOCUSATE SODIUM [Concomitant]
  6. NICORANDIL [Concomitant]
     Active Substance: NICORANDIL
     Dosage: DOSE REDUCED TO 10 MG TWICE DAILY
  7. SENNA ALEXANDRINA [Concomitant]
     Active Substance: SENNA LEAF
     Dosage: AT NIGHT
  8. AMLODIPINE [Concomitant]
     Active Substance: AMLODIPINE BESYLATE
  9. ALLOPURINOL. [Concomitant]
     Active Substance: ALLOPURINOL
  10. CYCLIZINE [Concomitant]
     Active Substance: CYCLIZINE
     Dosage: 1 TO BE TAKEN UP TO 3 TIMES A DAY.
  11. DABIGATRAN [Concomitant]
     Active Substance: DABIGATRAN
  12. GLYCERYL TRINITRATE [Concomitant]
     Active Substance: NITROGLYCERIN
     Indication: CHEST PAIN
     Dosage: 2-3 TIMES DAILY
     Route: 060
  13. SERTRALINE [Suspect]
     Active Substance: SERTRALINE HYDROCHLORIDE
     Indication: PRODUCT USED FOR UNKNOWN INDICATION
     Dosage: IN THE MORNING.?RECENT INCREASE
  14. DILTIAZEM. [Concomitant]
     Active Substance: DILTIAZEM
     Dosage: DRUG WITHDRAWN
  15. RAMIPRIL. [Concomitant]
     Active Substance: RAMIPRIL
     Dosage: AT NIGHT.
  16. ATORVASTATIN [Concomitant]
     Active Substance: ATORVASTATIN
  17. CODEINE [Concomitant]
     Active Substance: CODEINE
  18. LANSOPRAZOLE. [Concomitant]
     Active Substance: LANSOPRAZOLE
     Dosage: IN THE MORNING
  19. CARVEDILOL/CARVEDILOL HYDROCHLODRIDE [Concomitant]

REACTIONS (4)
  - Syncope [Recovered/Resolved]
  - Hypotension [Recovered/Resolved]
  - Confusional state [Recovered/Resolved]
  - Dysarthria [Unknown]

NARRATIVE: CASE EVENT DATE: 20160811
